FAERS Safety Report 16896147 (Version 1)
Quarter: 2019Q4

REPORT INFORMATION
  Report Type: Spontaneous
  Country: US (occurrence: US)
  Receive Date: 20190814
  Receipt Date: 20190814
  Transmission Date: 20200122
  Serious: Yes (Other)
  Sender: FDA-Public Use
  Company Number: None

PATIENT
  Age: 57 Year
  Sex: Male
  Weight: 77 kg

DRUGS (1)
  1. REGADENOSON [Suspect]
     Active Substance: REGADENOSON
     Indication: ANGIOGRAM
     Route: 042
     Dates: start: 20190730, end: 20190730

REACTIONS (1)
  - Seizure [None]

NARRATIVE: CASE EVENT DATE: 20190730
